FAERS Safety Report 6674855-4 (Version None)
Quarter: 2010Q2

REPORT INFORMATION
  Report Type: 
  Country: None (occurrence: None)
  Receive Date: 20100409
  Receipt Date: 20100330
  Transmission Date: 20101027
  Serious: Yes (Hospitalization, Other)
  Sender: FDA-Public Use
  Company Number: AU-JNJFOC-20100308234

PATIENT
  Sex: Male

DRUGS (10)
  1. RISPERIDONE [Suspect]
     Indication: DRUG USE FOR UNKNOWN INDICATION
     Route: 048
  2. PRAZOSIN HYDROCHLORIDE [Concomitant]
     Route: 065
  3. COVERSYL [Concomitant]
     Route: 065
  4. IBRUPROFEN [Concomitant]
     Route: 065
  5. PHENYTOIN [Concomitant]
     Route: 065
  6. TRIMETHOPRIM [Concomitant]
     Route: 065
  7. LACTULOSE [Concomitant]
     Route: 065
  8. FELODUR [Concomitant]
     Route: 065
  9. BETAMETHASONE [Concomitant]
     Route: 065
  10. TEMAZE [Concomitant]
     Route: 065

REACTIONS (3)
  - CONVULSION [None]
  - HAEMATOMA EVACUATION [None]
  - SUBDURAL HAEMORRHAGE [None]
